FAERS Safety Report 6011930-1 (Version None)
Quarter: 2008Q4

REPORT INFORMATION
  Report Type: 
  Country: None (occurrence: None)
  Receive Date: 20081218
  Receipt Date: 20081006
  Transmission Date: 20090506
  Serious: No
  Sender: FDA-Public Use
  Company Number: US-ASTRAZENECA-2008UW21750

PATIENT
  Sex: Female
  Weight: 102.1 kg

DRUGS (15)
  1. CRESTOR [Suspect]
     Indication: BLOOD CHOLESTEROL INCREASED
     Route: 048
  2. LEVOTHROID [Concomitant]
  3. ASPIRIN [Concomitant]
  4. CALTRATE [Concomitant]
  5. MINERAL TAB [Concomitant]
  6. FOLIC ACID [Concomitant]
  7. VITAMIN E [Concomitant]
  8. CLARITIN [Concomitant]
  9. MAGNESIUM SULFATE [Concomitant]
  10. TRAZODONE HCL [Concomitant]
  11. PREMARIN [Concomitant]
  12. TOPAMAX [Concomitant]
  13. CLOZARIL [Concomitant]
  14. BENADRYL [Concomitant]
  15. STOOL SOFTENER [Concomitant]

REACTIONS (2)
  - COUGH [None]
  - PULMONARY CONGESTION [None]
